FAERS Safety Report 19194579 (Version 1)
Quarter: 2021Q2

REPORT INFORMATION
  Report Type: Spontaneous
  Country: RU (occurrence: RU)
  Receive Date: 20210429
  Receipt Date: 20210429
  Transmission Date: 20210717
  Serious: Yes (Other)
  Sender: FDA-Public Use
  Company Number: RU-SA-2021SA137227

PATIENT
  Age: 74 Year
  Sex: Male

DRUGS (1)
  1. OMNIC OCA [Suspect]
     Active Substance: TAMSULOSIN HYDROCHLORIDE
     Indication: PROSTATIC ADENOMA
     Dosage: 0.4 MG, ONCE DAILY
     Route: 048
     Dates: start: 20210131, end: 20210203

REACTIONS (3)
  - Product use in unapproved indication [Unknown]
  - Renal colic [Recovered/Resolved]
  - Urinary retention [Recovered/Resolved]

NARRATIVE: CASE EVENT DATE: 20210131
